FAERS Safety Report 4779384-0 (Version None)
Quarter: 2005Q3

REPORT INFORMATION
  Report Type: 
  Country: None (occurrence: None)
  Receive Date: 20050923
  Receipt Date: 20050912
  Transmission Date: 20060218
  Serious: Yes (Hospitalization)
  Sender: FDA-Public Use
  Company Number: 2005BI017010

PATIENT
  Age: 38 Year
  Sex: Female
  Weight: 81.6475 kg

DRUGS (6)
  1. AVONEX [Suspect]
     Indication: MULTIPLE SCLEROSIS
     Dosage: 30 UG; QW; IM
     Route: 030
     Dates: start: 19960101, end: 20030801
  2. AVONEX [Suspect]
     Indication: MULTIPLE SCLEROSIS
     Dosage: 30 UG; QW; IM
     Route: 030
     Dates: start: 20030801
  3. CLONAZEPAM [Concomitant]
  4. ZOLOFT [Concomitant]
  5. LEXAPRO [Concomitant]
  6. VALTREX [Concomitant]

REACTIONS (10)
  - EXOSTOSIS [None]
  - FATIGUE [None]
  - HEADACHE [None]
  - INSOMNIA [None]
  - MENOPAUSE [None]
  - NECK PAIN [None]
  - OSTEOARTHRITIS [None]
  - PAIN [None]
  - SHOULDER PAIN [None]
  - URINARY INCONTINENCE [None]
